FAERS Safety Report 6849259-1 (Version None)
Quarter: 2010Q3

REPORT INFORMATION
  Report Type: 
  Country: None (occurrence: None)
  Receive Date: 20100716
  Receipt Date: 20080714
  Transmission Date: 20110219
  Serious: Yes (Other)
  Sender: FDA-Public Use
  Company Number: US-PFIZER INC-2007081449

PATIENT
  Sex: Female
  Weight: 63 kg

DRUGS (4)
  1. CHANTIX [Suspect]
     Indication: SMOKING CESSATION THERAPY
     Dates: start: 20070914, end: 20080101
  2. LYRICA [Concomitant]
  3. DARVOCET [Concomitant]
  4. ANALGESICS [Concomitant]
     Indication: INJURY

REACTIONS (24)
  - ACTIVITIES OF DAILY LIVING IMPAIRED [None]
  - ANXIETY [None]
  - ARTHRALGIA [None]
  - CRYING [None]
  - DEPRESSION [None]
  - DIARRHOEA [None]
  - DISCOMFORT [None]
  - DRUG DEPENDENCE [None]
  - DRUG DOSE OMISSION [None]
  - DYSPEPSIA [None]
  - ENDODONTIC PROCEDURE [None]
  - EUPHORIC MOOD [None]
  - FEELING ABNORMAL [None]
  - FLATULENCE [None]
  - HYPOPHAGIA [None]
  - IRRITABILITY [None]
  - MALAISE [None]
  - NERVOUSNESS [None]
  - OSTECTOMY [None]
  - PAIN [None]
  - SLEEP DISORDER [None]
  - TOOTH ABSCESS [None]
  - VOMITING [None]
  - WEIGHT INCREASED [None]
